FAERS Safety Report 8432600-6 (Version None)
Quarter: 2012Q2

REPORT INFORMATION
  Report Type: 
  Country: None (occurrence: None)
  Receive Date: 20120613
  Receipt Date: 20120608
  Transmission Date: 20120825
  Serious: Yes (Death, Hospitalization)
  Sender: FDA-Public Use
  Company Number: US-AMGEN-USACT2012030368

PATIENT
  Age: 62 Year
  Sex: Female
  Weight: 58.03 kg

DRUGS (15)
  1. PRILOSEC [Concomitant]
     Indication: DYSPEPSIA
     Dosage: 40 MG, QD
     Route: 048
     Dates: start: 20120413
  2. LORAZEPAM [Concomitant]
     Indication: ANXIETY
     Dosage: 1 MG, Q6H
     Route: 048
     Dates: start: 20120413
  3. COMPAZINE [Concomitant]
     Indication: NAUSEA
     Dosage: 10 MG, Q6H
     Route: 048
     Dates: start: 20120420
  4. OXYCODONE HYDROCHLORIDE [Concomitant]
     Indication: PAIN
     Dosage: UNK UNK, Q12H
     Route: 048
     Dates: start: 20120430
  5. PANITUMUMAB [Suspect]
     Indication: BREAST CANCER METASTATIC
     Dosage: 2655 MG, UNK
     Route: 042
     Dates: start: 20120503, end: 20120503
  6. GEMCITABINE HYDROCHLORIDE [Concomitant]
     Indication: BREAST CANCER METASTATIC
     Dosage: 416 MG, UNK
     Route: 042
     Dates: start: 20120503, end: 20120503
  7. HYDROCORTISONE [Concomitant]
     Indication: PROPHYLAXIS
     Dosage: UNK
     Route: 061
     Dates: start: 20120205
  8. LOMOTIL [Concomitant]
     Indication: DIARRHOEA
     Dosage: UNK UNK, QD
     Route: 048
  9. PALONOSETRON [Concomitant]
     Indication: PREMEDICATION
     Dosage: 0.25 MG, UNK
     Route: 042
     Dates: start: 20120503
  10. MEGACE [Concomitant]
     Indication: APPETITE DISORDER
     Dosage: 800 MG, QD
     Route: 048
     Dates: start: 20120501
  11. DOXYCYCLINE [Concomitant]
     Indication: PROPHYLAXIS
     Dosage: 100 MG, BID
     Route: 048
     Dates: start: 20120502
  12. CARBOPLATIN [Concomitant]
     Indication: BREAST CANCER METASTATIC
     Dosage: UNK
     Route: 042
     Dates: start: 20120503, end: 20120503
  13. LORAZEPAM [Concomitant]
     Indication: DYSPNOEA
  14. MIRALAX [Concomitant]
     Indication: CONSTIPATION
     Dosage: 17 G, QD
     Route: 048
     Dates: start: 20120415
  15. DEXAMETHASONE [Concomitant]
     Indication: PREMEDICATION
     Dosage: 20 MG, UNK
     Route: 042
     Dates: start: 20120503

REACTIONS (2)
  - DEATH [None]
  - MALIGNANT PLEURAL EFFUSION [None]
